FAERS Safety Report 9743021 (Version 1)
Quarter: 2013Q4

REPORT INFORMATION
  Report Type: Spontaneous
  Country: FR (occurrence: FR)
  Receive Date: 20131210
  Receipt Date: 20131210
  Transmission Date: 20140711
  Serious: Yes (Congenital Anomaly)
  Sender: FDA-Public Use
  Company Number: FR-TEVA-448139ISR

PATIENT
  Sex: Female

DRUGS (1)
  1. MODIODAL 100 MG [Suspect]
     Route: 064
     Dates: end: 201106

REACTIONS (2)
  - Fallot^s tetralogy [Recovered/Resolved]
  - Microcephaly [Not Recovered/Not Resolved]
